FAERS Safety Report 4487661-6 (Version None)
Quarter: 2004Q4

REPORT INFORMATION
  Report Type: 
  Country: None (occurrence: None)
  Receive Date: 20041025
  Receipt Date: 20040923
  Transmission Date: 20050328
  Serious: Yes (Disabling)
  Sender: FDA-Public Use
  Company Number: 2003-BP-07242AU

PATIENT
  Age: 86 Year
  Sex: Female

DRUGS (2)
  1. SPIRIVA [Suspect]
     Indication: BRONCHIECTASIS
     Dosage: 18 MCG (18 MCG, 18MCG DAILY) IH
     Dates: start: 20030909, end: 20030910
  2. SPIRIVA [Suspect]
     Indication: BRONCHITIS
     Dosage: 18 MCG (18 MCG, 18MCG DAILY) IH
     Dates: start: 20030909, end: 20030910

REACTIONS (3)
  - CHEST PAIN [None]
  - DYSPNOEA [None]
  - TREMOR [None]
